FAERS Safety Report 4757962-2 (Version None)
Quarter: 2005Q3

REPORT INFORMATION
  Report Type: 
  Country: None (occurrence: None)
  Receive Date: 20050831
  Receipt Date: 20050805
  Transmission Date: 20060218
  Serious: Yes (Other)
  Sender: FDA-Public Use
  Company Number: US-GILEAD-2005-0008598

PATIENT
  Sex: Female

DRUGS (6)
  1. TENOFOVIR DISOPROXIL FUMARATE [Suspect]
     Indication: HIV INFECTION
     Route: 064
     Dates: start: 20050209
  2. RETROVIR [Concomitant]
     Indication: HIV INFECTION
     Route: 064
     Dates: start: 20050802, end: 20050803
  3. REYAYTAZ [Concomitant]
     Indication: HIV INFECTION
     Route: 064
     Dates: start: 20030923
  4. NORVIR [Concomitant]
     Indication: HIV INFECTION
     Route: 064
     Dates: start: 20030923
  5. EPIVIR [Concomitant]
     Indication: HIV INFECTION
     Route: 064
     Dates: start: 20040323
  6. VIDEX [Concomitant]
     Indication: HIV INFECTION
     Route: 064
     Dates: start: 20040928, end: 20050209

REACTIONS (4)
  - BRADYCARDIA [None]
  - CONGENITAL ANOMALY [None]
  - DRUG EXPOSURE DURING PREGNANCY [None]
  - FOETAL GROWTH RETARDATION [None]
